FAERS Safety Report 9115687 (Version 1)
Quarter: 2013Q1

REPORT INFORMATION
  Report Type: Spontaneous
  Country: IN (occurrence: IN)
  Receive Date: 20130225
  Receipt Date: 20130225
  Transmission Date: 20140127
  Serious: Yes (Life-Threatening, Hospitalization, Other)
  Sender: FDA-Public Use
  Company Number: IN-PFIZER INC-2013066612

PATIENT
  Age: 8 Year
  Sex: Male
  Weight: 24.5 kg

DRUGS (4)
  1. PHENYTOIN [Suspect]
     Indication: GRAND MAL CONVULSION
     Dosage: 300 MG, 1X/DAY
     Route: 042
  2. PHENYTOIN [Suspect]
     Indication: STATUS EPILEPTICUS
  3. DIAZEPAM [Concomitant]
     Indication: GRAND MAL CONVULSION
     Dosage: UNK
     Route: 042
  4. DIAZEPAM [Concomitant]
     Indication: STATUS EPILEPTICUS

REACTIONS (2)
  - Macroglossia [Recovered/Resolved]
  - Tongue oedema [Recovered/Resolved]
